FAERS Safety Report 11750339 (Version 1)
Quarter: 2015Q4

REPORT INFORMATION
  Report Type: Report from Study
  Country: RU (occurrence: RU)
  Receive Date: 20151118
  Receipt Date: 20151118
  Transmission Date: 20160304
  Serious: Yes (Other)
  Sender: FDA-Public Use
  Company Number: RU-BAYER-2015-053058

PATIENT
  Age: 18 Year
  Sex: Female
  Weight: 60.9 kg

DRUGS (1)
  1. YAZ PLUS [Suspect]
     Active Substance: DROSPIRENONE\ETHINYL ESTRADIOL
     Indication: CONTRACEPTION
     Dosage: UNK
     Route: 048
     Dates: start: 20141218, end: 20150114

REACTIONS (4)
  - Drug ineffective [None]
  - Cervix dystocia [None]
  - Pregnancy on oral contraceptive [Recovered/Resolved]
  - Emotional disorder [None]

NARRATIVE: CASE EVENT DATE: 2015
